FAERS Safety Report 4726181-8 (Version None)
Quarter: 2005Q3

REPORT INFORMATION
  Report Type: 
  Country: None (occurrence: None)
  Receive Date: 20050725
  Receipt Date: 20050707
  Transmission Date: 20060218
  Serious: Yes (Hospitalization)
  Sender: FDA-Public Use
  Company Number: 20052437

PATIENT
  Sex: Male

DRUGS (1)
  1. LIORESAL [Suspect]
     Indication: MUSCLE SPASTICITY
     Dosage: DAILY, INTRATHECAL

REACTIONS (4)
  - GAIT DISTURBANCE [None]
  - GENERALISED OEDEMA [None]
  - HYPOTONIA [None]
  - LABORATORY TEST ABNORMAL [None]
